FAERS Safety Report 7227193-5 (Version None)
Quarter: 2011Q1

REPORT INFORMATION
  Report Type: 
  Country: None (occurrence: None)
  Receive Date: 20110111
  Receipt Date: 20110111
  Transmission Date: 20110831
  Serious: Yes (Other)
  Sender: FDA-Public Use
  Company Number: None

PATIENT
  Age: 23 Year
  Sex: Male
  Weight: 77.1115 kg

DRUGS (2)
  1. FINASTERIDE [Suspect]
     Indication: ANDROGENETIC ALOPECIA
     Dosage: 1 MG QD PO
     Route: 048
     Dates: start: 20080401, end: 20080415
  2. FINASTERIDE [Suspect]
     Indication: ANDROGENETIC ALOPECIA
     Dosage: 1 MG QD PO
     Route: 048
     Dates: start: 20090901, end: 20100320

REACTIONS (9)
  - HYPOMANIA [None]
  - COGNITIVE DISORDER [None]
  - DELUSION [None]
  - DEPRESSION [None]
  - AFFECTIVE DISORDER [None]
  - LIBIDO DECREASED [None]
  - ERECTILE DYSFUNCTION [None]
  - TACHYPHRENIA [None]
  - ANXIETY [None]
